FAERS Safety Report 23529559 (Version 2)
Quarter: 2024Q1

REPORT INFORMATION
  Report Type: Report from Study
  Country: US (occurrence: US)
  Receive Date: 20240216
  Receipt Date: 20240322
  Transmission Date: 20240410
  Serious: No
  Sender: FDA-Public Use
  Company Number: US-ACADIA PHARMACEUTICALS INC.-ACA-2024-PIM-000676

PATIENT
  Age: 83 Year
  Sex: Female

DRUGS (13)
  1. NUPLAZID [Suspect]
     Active Substance: PIMAVANSERIN TARTRATE
     Indication: Parkinson^s disease psychosis
     Dosage: 34 MILLIGRAM, QD
     Route: 048
     Dates: start: 20231226
  2. ENTACAPONE [Concomitant]
     Active Substance: ENTACAPONE
  3. SINEMET [Concomitant]
     Active Substance: CARBIDOPA\LEVODOPA
  4. QUETIAPINE [Concomitant]
     Active Substance: QUETIAPINE
  5. LOSARTAN [Concomitant]
     Active Substance: LOSARTAN
  6. ALUMINUM HYDROXIDE\MAGNESIUM TRISILICATE\SODIUM ALGINATE [Concomitant]
     Active Substance: ALUMINUM HYDROXIDE\MAGNESIUM TRISILICATE\SODIUM ALGINATE
  7. METHYLPHENIDATE [Concomitant]
     Active Substance: METHYLPHENIDATE
  8. HYDROCHLOROTHIAZIDE [Concomitant]
     Active Substance: HYDROCHLOROTHIAZIDE
  9. MELOXICAM [Concomitant]
     Active Substance: MELOXICAM
  10. OMEPRAZOLE [Concomitant]
     Active Substance: OMEPRAZOLE
  11. CRESTOR [Concomitant]
     Active Substance: ROSUVASTATIN CALCIUM
  12. ZOLOFT [Concomitant]
     Active Substance: SERTRALINE HYDROCHLORIDE
  13. NAMENDA [Concomitant]
     Active Substance: MEMANTINE HYDROCHLORIDE

REACTIONS (3)
  - Lower respiratory tract congestion [Unknown]
  - Urinary tract infection [Unknown]
  - Dyspnoea [Unknown]

NARRATIVE: CASE EVENT DATE: 20240111
